FAERS Safety Report 18296890 (Version 4)
Quarter: 2020Q3

REPORT INFORMATION
  Report Type: Spontaneous
  Country: US (occurrence: US)
  Receive Date: 20200922
  Receipt Date: 20200930
  Transmission Date: 20201103
  Serious: Yes (Other)
  Sender: FDA-Public Use
  Company Number: US-PFIZER INC-2020360476

PATIENT
  Age: 2 Year
  Sex: Male

DRUGS (2)
  1. TOPOTECAN HYDROCHLORIDE. [Suspect]
     Active Substance: TOPOTECAN HYDROCHLORIDE
     Dosage: UNK
     Dates: start: 20190821
  2. CYCLOPHOSPHAMIDE. [Suspect]
     Active Substance: CYCLOPHOSPHAMIDE
     Dosage: UNK
     Dates: start: 20190821

REACTIONS (6)
  - Hepatic lesion [Unknown]
  - Rhinovirus infection [Unknown]
  - Off label use [Unknown]
  - Metapneumovirus infection [Unknown]
  - Transaminases increased [Recovered/Resolved]
  - Product use issue [Unknown]
